FAERS Safety Report 16004772 (Version 1)
Quarter: 2019Q1

REPORT INFORMATION
  Report Type: Spontaneous
  Country: US (occurrence: US)
  Receive Date: 20190225
  Receipt Date: 20190225
  Transmission Date: 20190418
  Serious: Yes (Other)
  Sender: FDA-Public Use
  Company Number: None

PATIENT
  Age: 23 Year
  Sex: Female
  Weight: 71.55 kg

DRUGS (4)
  1. SALICYLIC ACID 2% SOLUTION [Suspect]
     Active Substance: SALICYLIC ACID
     Indication: ACNE
     Route: 061
     Dates: start: 20190128, end: 20190224
  2. EMERGENCY INHALER [Concomitant]
     Active Substance: UNSPECIFIED INGREDIENT
  3. BUPROPION. [Concomitant]
     Active Substance: BUPROPION
  4. VITAMIN D GUMMIES [Concomitant]

REACTIONS (2)
  - Blister [None]
  - Chemical burn of skin [None]

NARRATIVE: CASE EVENT DATE: 20190224
